FAERS Safety Report 7604923-1 (Version None)
Quarter: 2011Q3

REPORT INFORMATION
  Report Type: 
  Country: None (occurrence: None)
  Receive Date: 20110713
  Receipt Date: 20110702
  Transmission Date: 20111222
  Serious: Yes (Death, Hospitalization, Other)
  Sender: FDA-Public Use
  Company Number: ES-PAR PHARMACEUTICAL, INC-2011SCPR003099

PATIENT
  Age: 66 Month
  Sex: Male

DRUGS (1)
  1. ONDANSETRON [Suspect]
     Indication: VOMITING
     Dosage: 2 MG, SINGLE
     Route: 060

REACTIONS (7)
  - SEPSIS [None]
  - DEATH [None]
  - HYPERTHERMIA MALIGNANT [None]
  - ECHOVIRUS TEST POSITIVE [None]
  - LYMPHADENOPATHY [None]
  - BRONCHOPNEUMONIA [None]
  - THROMBOSIS [None]
